FAERS Safety Report 23178908 (Version 1)
Quarter: 2023Q4

REPORT INFORMATION
  Report Type: Spontaneous
  Country: JP (occurrence: JP)
  Receive Date: 20231113
  Receipt Date: 20231113
  Transmission Date: 20240109
  Serious: Yes (Other)
  Sender: FDA-Public Use
  Company Number: JP-PFIZER INC-PV202300183405

PATIENT

DRUGS (1)
  1. ZYVOX [Suspect]
     Active Substance: LINEZOLID
     Indication: Staphylococcal infection
     Dosage: UNK
     Dates: start: 20231019, end: 20231104

REACTIONS (4)
  - Haemorrhage urinary tract [Unknown]
  - Red blood cell count decreased [Unknown]
  - Anaemia [Unknown]
  - Inflammation [Unknown]
